FAERS Safety Report 12787159 (Version 1)
Quarter: 2016Q3

REPORT INFORMATION
  Report Type: Spontaneous
  Country: US (occurrence: US)
  Receive Date: 20160927
  Receipt Date: 20160927
  Transmission Date: 20161109
  Serious: No
  Sender: FDA-Public Use
  Company Number: None

PATIENT
  Age: 62 Year
  Sex: Female

DRUGS (7)
  1. IBRANCE [Suspect]
     Active Substance: PALBOCICLIB
     Indication: BREAST CANCER
     Dosage: 1 CAPSULE QD X 21 DAYS PO
     Route: 048
     Dates: start: 20160322, end: 201609
  2. NEURONTIN [Concomitant]
     Active Substance: GABAPENTIN
  3. ZOCOR [Concomitant]
     Active Substance: SIMVASTATIN
  4. SINGULAIR [Concomitant]
     Active Substance: MONTELUKAST SODIUM
  5. TRAMADOL. [Concomitant]
     Active Substance: TRAMADOL
  6. XGEVA [Concomitant]
     Active Substance: DENOSUMAB
  7. FASLODEX [Concomitant]
     Active Substance: FULVESTRANT

REACTIONS (2)
  - Drug ineffective [None]
  - Laboratory test abnormal [None]

NARRATIVE: CASE EVENT DATE: 201609
